FAERS Safety Report 7336214-0 (Version None)
Quarter: 2011Q1

REPORT INFORMATION
  Report Type: 
  Country: None (occurrence: None)
  Receive Date: 20110307
  Receipt Date: 20110223
  Transmission Date: 20110831
  Serious: Yes (Hospitalization, Disabling)
  Sender: FDA-Public Use
  Company Number: FR-PFIZER INC-2011013200

PATIENT
  Age: 71 Year
  Sex: Female

DRUGS (12)
  1. DIFFU K [Concomitant]
     Dosage: UNK
  2. BROMAZEPAM [Concomitant]
     Dosage: UNK
  3. ESOMEPRAZOLE [Concomitant]
     Dosage: UNK
  4. LEVOTHYROXINE SODIUM [Concomitant]
     Dosage: 75 UG, 1X/DAY
  5. NEBIVOLOL [Concomitant]
     Dosage: UNK
  6. ATHYMIL [Concomitant]
     Dosage: 10 MG, 1X/DAY
  7. AERIUS [Concomitant]
     Dosage: UNK
  8. CORDARONE [Suspect]
     Indication: ATRIAL FIBRILLATION
     Dosage: 200 MG, 1X/DAY
     Route: 048
     Dates: start: 20090701
  9. ZOLPIDEM [Concomitant]
     Dosage: UNK
  10. COUMADIN [Concomitant]
     Dosage: UNK
  11. LASIX [Concomitant]
     Dosage: UNK
  12. HEPTAMINOL [Concomitant]
     Dosage: UNK

REACTIONS (3)
  - MUSCLE ATROPHY [None]
  - BALANCE DISORDER [None]
  - CUSHING'S SYNDROME [None]
